FAERS Safety Report 9013927 (Version 1)
Quarter: 2012Q4

REPORT INFORMATION
  Report Type: Spontaneous
  Country: US (occurrence: None)
  Receive Date: 20121231
  Receipt Date: 20121231
  Transmission Date: 20130627
  Serious: Yes (Other)
  Sender: FDA-Public Use
  Company Number: KAD201212-000535

PATIENT
  Sex: Female

DRUGS (2)
  1. TOPOTECAN [Suspect]
     Route: 042
  2. LENALIDOMIDE (LENALIDOMIDE) (CAPSULE) (LENALIDOMIDE) [Suspect]
     Route: 048

REACTIONS (14)
  - Toxicity to various agents [None]
  - Therapeutic product ineffective [None]
  - Neutropenia [None]
  - Thrombocytopenia [None]
  - Anaemia [None]
  - Fatigue [None]
  - Pulmonary embolism [None]
  - Intestinal obstruction [None]
  - Bone marrow failure [None]
  - Haematotoxicity [None]
  - Ovarian epithelial cancer [None]
  - Malignant neoplasm progression [None]
  - Pneumonia [None]
  - Pruritus [None]
